FAERS Safety Report 4948029-9 (Version None)
Quarter: 2006Q1

REPORT INFORMATION
  Report Type: 
  Country: None (occurrence: None)
  Receive Date: 20060320
  Receipt Date: 20051207
  Transmission Date: 20060701
  Serious: Yes (Hospitalization)
  Sender: FDA-Public Use
  Company Number: US-MERCK-0512USA01269

PATIENT
  Age: 70 Year
  Sex: Female
  Weight: 105 kg

DRUGS (28)
  1. VIOXX [Suspect]
     Indication: SHOULDER PAIN
     Route: 048
     Dates: start: 20000101, end: 20031024
  2. VIOXX [Suspect]
     Indication: ARTHRALGIA
     Route: 048
     Dates: start: 20000101, end: 20031024
  3. PLAVIX [Concomitant]
     Indication: COAGULOPATHY
     Route: 065
     Dates: start: 20021011, end: 20030908
  4. DIOVAN [Concomitant]
     Indication: HYPERTENSION
     Route: 065
     Dates: start: 20021113, end: 20030815
  5. HYDRA-ZIDE [Concomitant]
     Indication: HYPERTENSION
     Route: 065
     Dates: start: 19970812, end: 20020812
  6. KETOROLAC TROMETHAMINE [Concomitant]
     Route: 065
     Dates: start: 19990304
  7. OXYCODONE [Concomitant]
     Route: 065
     Dates: start: 19990304
  8. INDERAL [Concomitant]
     Indication: CARDIAC DISORDER
     Route: 065
     Dates: start: 19970910, end: 20030805
  9. ASPIRIN [Concomitant]
     Indication: PROPHYLAXIS
     Route: 065
     Dates: start: 20020109, end: 20031001
  10. DICLOFENAC SODIUM [Concomitant]
     Indication: PAIN
     Route: 065
     Dates: start: 19990304
  11. IBUPROFEN [Concomitant]
     Indication: PAIN
     Route: 065
     Dates: start: 19990304
  12. CYCLOBENZAPRINE HYDROCHLORIDE [Concomitant]
     Indication: PAIN
     Route: 065
     Dates: start: 19990304
  13. NEURONTIN [Concomitant]
     Indication: PAIN
     Route: 065
     Dates: start: 19990304
  14. GLUCOSAMINE [Concomitant]
     Route: 065
     Dates: start: 20000101
  15. ACETAMINOPHEN AND PROPOXYPHENE NAPSYLATE [Concomitant]
     Indication: PAIN
     Route: 065
     Dates: start: 19990304
  16. [THERAPY UNSPECIFIED] [Concomitant]
     Route: 065
  17. K-DUR 10 [Concomitant]
     Indication: BLOOD POTASSIUM
     Route: 065
  18. GLIPIZIDE [Concomitant]
     Indication: DIABETES MELLITUS
     Route: 065
  19. LOTRISONE [Concomitant]
     Route: 065
  20. CLARITIN [Concomitant]
     Indication: HYPERSENSITIVITY
     Route: 065
  21. KLOR-CON [Concomitant]
     Route: 065
  22. ALLEGRA [Concomitant]
     Route: 065
  23. GLUCOPHAGE [Concomitant]
     Route: 065
  24. ALPRAZOLAM [Concomitant]
     Route: 065
  25. HYDRALAZINE [Concomitant]
     Route: 065
  26. CEPHALEXIN [Concomitant]
     Route: 065
  27. GUIATUSS A.C. SYRUP [Concomitant]
     Route: 065
  28. CIPROFLOXACIN [Concomitant]
     Route: 065

REACTIONS (27)
  - ABDOMINAL PAIN LOWER [None]
  - ARRHYTHMIA [None]
  - ATRIAL FIBRILLATION [None]
  - ATRIAL FLUTTER [None]
  - BASAL CELL CARCINOMA [None]
  - BRADYCARDIA [None]
  - CEREBROVASCULAR ACCIDENT [None]
  - DIABETES MELLITUS [None]
  - DIZZINESS [None]
  - HEART RATE IRREGULAR [None]
  - HYPERCHLORHYDRIA [None]
  - HYPERSENSITIVITY [None]
  - HYPOKALAEMIA [None]
  - MIXED HYPERLIPIDAEMIA [None]
  - MUSCLE SPASMS [None]
  - OEDEMA [None]
  - PAIN IN EXTREMITY [None]
  - PALPITATIONS [None]
  - POLYARTHRITIS [None]
  - POST PROCEDURAL COMPLICATION [None]
  - POSTMENOPAUSAL HAEMORRHAGE [None]
  - PULMONARY MASS [None]
  - ROTATOR CUFF SYNDROME [None]
  - SHOULDER PAIN [None]
  - THROMBOSIS [None]
  - TRANSIENT ISCHAEMIC ATTACK [None]
  - UMBILICAL HERNIA [None]
